FAERS Safety Report 20573422 (Version 1)
Quarter: 2022Q1

REPORT INFORMATION
  Report Type: Spontaneous
  Country: US (occurrence: US)
  Receive Date: 20220309
  Receipt Date: 20220309
  Transmission Date: 20220424
  Serious: No
  Sender: FDA-Public Use
  Company Number: US-PFIZER INC-2021887627

PATIENT
  Age: 52 Year
  Sex: Female

DRUGS (1)
  1. XELJANZ XR [Suspect]
     Active Substance: TOFACITINIB CITRATE
     Indication: Rheumatoid arthritis
     Dosage: 11 MG, DAILY
     Route: 048
     Dates: start: 2018

REACTIONS (6)
  - Pain [Recovering/Resolving]
  - Arthralgia [Unknown]
  - Loss of personal independence in daily activities [Unknown]
  - Joint swelling [Unknown]
  - Sleep disorder [Not Recovered/Not Resolved]
  - Musculoskeletal stiffness [Recovering/Resolving]
